FAERS Safety Report 6465444-5 (Version None)
Quarter: 2009Q4

REPORT INFORMATION
  Report Type: 
  Country: None (occurrence: None)
  Receive Date: 20091201
  Receipt Date: 20091116
  Transmission Date: 20100525
  Serious: Yes (Hospitalization, Other)
  Sender: FDA-Public Use
  Company Number: US-GENENTECH-294779

PATIENT

DRUGS (2)
  1. BEVACIZUMAB [Suspect]
     Indication: NEOPLASM
     Dosage: UNK
     Route: 042
  2. SUTENT [Suspect]
     Indication: NEOPLASM
     Route: 048

REACTIONS (1)
  - MENTAL STATUS CHANGES [None]
